FAERS Safety Report 18797881 (Version 1)
Quarter: 2021Q1

REPORT INFORMATION
  Report Type: Spontaneous
  Country: NL (occurrence: NL)
  Receive Date: 20210128
  Receipt Date: 20210128
  Transmission Date: 20210419
  Serious: Yes (Hospitalization)
  Sender: FDA-Public Use
  Company Number: NL-TEVA-2021-NL-1873224

PATIENT
  Age: 64 Year
  Sex: Female
  Weight: 94 kg

DRUGS (12)
  1. SULFASALAZINE TABLET MSR 500MG / BRAND NAME NOT SPECIFIED [Suspect]
     Active Substance: SULFASALAZINE
     Indication: SYSTEMIC LUPUS ERYTHEMATOSUS
     Dosage: 2000 MILLIGRAM DAILY; 2DD1000MG
     Route: 065
     Dates: start: 20201202, end: 20210103
  2. HYDROXYCHLOROQUINE TABLET OMHULD 200MG / BRAND NAME NOT SPECIFIED [Concomitant]
     Dosage: 200 MG (MILLIGRAMS), UNIT DOSE: 200 MG, THERAPY END DATE : ASKED BUT UNKNOWN
     Dates: start: 20201202
  3. FLUTICASON/VILANTEROL INHPDR 184/22UG/DO / BRAND NAME NOT SPECIFIED [Concomitant]
     Dosage: THERAPY START DATE: ASKED BUT UNKNOWN, THERAPY END DATE : ASKED BUT UNKNOWN
  4. PANTOPRAZOL TABLET MSR 40MG / BRAND NAME NOT SPECIFIED [Concomitant]
     Active Substance: PANTOPRAZOLE
     Dosage: THERAPY START DATE: ASKED BUT UNKNOWN, THERAPY END DATE : ASKED BUT UNKNOWN
  5. SALBUTAMOL AEROSOL 100UG/DO / BRAND NAME NOT SPECIFIED [Concomitant]
     Dosage: AEROSOL , THERAPY START DATE: ASKED BUT UNKNOWN, THERAPY END DATE : ASKED BUT UNKNOWN
  6. CLOPIDOGREL TABLET   75MG / BRAND NAME NOT SPECIFIED [Concomitant]
     Active Substance: CLOPIDOGREL BISULFATE
     Dosage: THERAPY START DATE: ASKED BUT UNKNOWN, THERAPY END DATE : ASKED BUT UNKNOWN
  7. SIMVASTATINE TABLET FO 40MG / BRAND NAME NOT SPECIFIED [Concomitant]
     Active Substance: SIMVASTATIN
     Dosage: THERAPY START DATE: ASKED BUT UNKNOWN, THERAPY END DATE : ASKED BUT UNKNOWN
  8. CALCIUMCARB/COLECALC KAUWTB 1,25G/800IE (500MG CA) / CALCI CHEW D3 KAU [Concomitant]
     Dosage: THERAPY START DATE: ASKED BUT UNKNOWN, THERAPY END DATE : ASKED BUT UNKNOWN
  9. TELMISARTAN TABLET 80MG / BRAND NAME NOT SPECIFIED [Concomitant]
     Active Substance: TELMISARTAN
     Dosage: THERAPY START DATE: ASKED BUT UNKNOWN, THERAPY END DATE : ASKED BUT UNKNOWN
  10. LEVETIRACETAM / BRAND NAME NOT SPECIFIED [Concomitant]
     Dosage: THERAPY START DATE: ASKED BUT UNKNOWN, THERAPY END DATE : ASKED BUT UNKNOWN
  11. FLUORMETHOLON OOGDRUPPELS 1MG/ML / BRAND NAME NOT SPECIFIED [Concomitant]
     Dosage: THERAPY START DATE: ASKED BUT UNKNOWN, THERAPY END DATE : ASKED BUT UNKNOWN
  12. FUROSEMIDE TABLET 20MG / BRAND NAME NOT SPECIFIED [Concomitant]
     Dosage: THERAPY START DATE: ASKED BUT UNKNOWN, THERAPY END DATE : ASKED BUT UNKNOWN

REACTIONS (1)
  - Meningitis aseptic [Recovering/Resolving]

NARRATIVE: CASE EVENT DATE: 20210103
